FAERS Safety Report 6563984-1 (Version None)
Quarter: 2010Q1

REPORT INFORMATION
  Report Type: 
  Country: None (occurrence: None)
  Receive Date: 20100131
  Receipt Date: 20100120
  Transmission Date: 20100710
  Serious: Yes (Hospitalization)
  Sender: FDA-Public Use
  Company Number: US-JNJFOC-20100109445

PATIENT
  Sex: Female
  Weight: 53.52 kg

DRUGS (7)
  1. REMICADE [Suspect]
     Indication: CROHN'S DISEASE
     Route: 042
  2. REMICADE [Suspect]
     Dosage: 2 DOSES PRIOR TO ENROLLMENT
     Route: 042
  3. REMICADE [Suspect]
     Route: 042
  4. ACETAMINOPHEN [Concomitant]
     Indication: PREMEDICATION
  5. ADALIMUMAB [Concomitant]
     Indication: CROHN'S DISEASE
  6. ANTIHISTAMINES [Concomitant]
     Indication: PREMEDICATION
  7. STEROIDS NOS [Concomitant]
     Indication: PREMEDICATION

REACTIONS (4)
  - CARDIO-RESPIRATORY DISTRESS [None]
  - DEEP VEIN THROMBOSIS [None]
  - POLYCYTHAEMIA VERA [None]
  - PULMONARY EMBOLISM [None]
